FAERS Safety Report 16648192 (Version 1)
Quarter: 2019Q3

REPORT INFORMATION
  Report Type: Spontaneous
  Country: GB (occurrence: GB)
  Receive Date: 20190730
  Receipt Date: 20190730
  Transmission Date: 20191004
  Serious: Yes (Life-Threatening, Hospitalization)
  Sender: FDA-Public Use
  Company Number: PHHY2019GB170264

PATIENT
  Age: 56 Year
  Sex: Female
  Weight: 80.6 kg

DRUGS (4)
  1. PACLITAXEL. [Suspect]
     Active Substance: PACLITAXEL
     Indication: NON-SMALL CELL LUNG CANCER STAGE IV
     Dosage: 270 MG, Q3W
     Route: 042
     Dates: start: 20190329, end: 20190612
  2. BEVACIZUMAB. [Suspect]
     Active Substance: BEVACIZUMAB
     Indication: NON-SMALL CELL LUNG CANCER STAGE IV
     Dosage: 1200 MG, Q3W
     Route: 042
     Dates: start: 20190424
  3. CARBOPLATIN. [Suspect]
     Active Substance: CARBOPLATIN
     Indication: NON-SMALL CELL LUNG CANCER STAGE IV
     Dosage: 630 MG, Q3W
     Route: 042
     Dates: start: 20190329, end: 20190612
  4. ATEZOLIZUMAB. [Suspect]
     Active Substance: ATEZOLIZUMAB
     Indication: NON-SMALL CELL LUNG CANCER STAGE IV
     Dosage: 630 MG, Q3W
     Route: 042
     Dates: start: 20190329

REACTIONS (4)
  - Lethargy [Unknown]
  - Febrile neutropenia [Recovered/Resolved]
  - Neutropenic sepsis [Unknown]
  - Chills [Unknown]

NARRATIVE: CASE EVENT DATE: 20190528
